FAERS Safety Report 6531486-4 (Version None)
Quarter: 2010Q1

REPORT INFORMATION
  Report Type: 
  Country: None (occurrence: None)
  Receive Date: 20100108
  Receipt Date: 20091210
  Transmission Date: 20100710
  Serious: No
  Sender: FDA-Public Use
  Company Number: US-BAYER-200917648BCC

PATIENT
  Age: 81 Year
  Sex: Female
  Weight: 54 kg

DRUGS (6)
  1. ALEVE (CAPLET) [Suspect]
     Indication: ARTHRITIS
     Dosage: TOTAL DAILY DOSE: 440 MG  UNIT DOSE: 220 MG
     Route: 048
     Dates: start: 20091203, end: 20091203
  2. ALEVE (CAPLET) [Suspect]
     Dosage: TOTAL DAILY DOSE: 440 MG  UNIT DOSE: 220 MG
     Route: 048
     Dates: start: 20091208
  3. PRAVACHOL [Concomitant]
     Route: 065
  4. ASPIRIN [Concomitant]
     Route: 065
  5. CENTRUM SILVER [Concomitant]
     Route: 065
  6. CALTRATE CALCIUM [Concomitant]
     Route: 065

REACTIONS (2)
  - ARTHRALGIA [None]
  - BONE PAIN [None]
